FAERS Safety Report 4608522-5 (Version None)
Quarter: 2005Q1

REPORT INFORMATION
  Report Type: 
  Country: None (occurrence: None)
  Receive Date: 20050315
  Receipt Date: 20050304
  Transmission Date: 20050727
  Serious: Yes (Other)
  Sender: FDA-Public Use
  Company Number: US-JNJFOC-20050301898

PATIENT
  Age: 2 Year
  Sex: Male

DRUGS (2)
  1. CHILDREN'S TYLENOL  LIQUID CHERRY BLAST [Suspect]
  2. CHILDREN'S TYLENOL  LIQUID CHERRY BLAST [Suspect]

REACTIONS (1)
  - FEBRILE CONVULSION [None]
